FAERS Safety Report 20354646 (Version 2)
Quarter: 2022Q1

REPORT INFORMATION
  Report Type: Spontaneous
  Country: FR (occurrence: FR)
  Receive Date: 20220120
  Receipt Date: 20220202
  Transmission Date: 20220423
  Serious: No
  Sender: FDA-Public Use
  Company Number: FR-NOVARTISPH-NVSC2022FR009067

PATIENT
  Age: 80 Year
  Sex: Female

DRUGS (1)
  1. AMOXICILLIN [Suspect]
     Active Substance: AMOXICILLIN
     Indication: Tooth infection
     Dosage: 500 MG BID, START: AROUND 14 DEC 2021; STOP DATE: 21 DEC 2021 (MORNING AND EVENING)
     Route: 048

REACTIONS (2)
  - Swelling face [Not Recovered/Not Resolved]
  - Drug ineffective [Not Recovered/Not Resolved]

NARRATIVE: CASE EVENT DATE: 20220107
